FAERS Safety Report 16085758 (Version 1)
Quarter: 2019Q1

REPORT INFORMATION
  Report Type: Spontaneous
  Country: DE (occurrence: DE)
  Receive Date: 20190318
  Receipt Date: 20190318
  Transmission Date: 20190418
  Serious: Yes (Other)
  Sender: FDA-Public Use
  Company Number: DE-BAYER-2019-052813

PATIENT
  Sex: Male

DRUGS (2)
  1. ASPIRIN PROTECT 100 MG [Suspect]
     Active Substance: ASPIRIN
  2. PLAVIX [Concomitant]
     Active Substance: CLOPIDOGREL BISULFATE

REACTIONS (4)
  - Gastric disorder [None]
  - Hunger [None]
  - Renal injury [None]
  - Dyspepsia [None]

NARRATIVE: CASE EVENT DATE: 201902
